FAERS Safety Report 8945911 (Version 2)
Quarter: 2012Q4

REPORT INFORMATION
  Report Type: 
  Country: US (occurrence: US)
  Receive Date: 20121205
  Receipt Date: 20121213
  Transmission Date: 20130627
  Serious: Yes (Death)
  Sender: FDA-Public Use
  Company Number: US-B.I. PHARMACEUTICALS,INC./RIDGEFIELD-2012-BI-01973BP

PATIENT
  Age: 77 Year
  Sex: Female

DRUGS (9)
  1. PRADAXA [Suspect]
     Indication: ATRIAL FIBRILLATION
     Dosage: 300 mg
     Dates: start: 20110303
  2. COREG [Concomitant]
  3. SPIRONOLACTONE [Concomitant]
  4. PRAVACHOL [Concomitant]
  5. LISINOPRIL [Concomitant]
  6. LEVOXYL [Concomitant]
  7. LASIX [Concomitant]
  8. DIGOXIN [Concomitant]
  9. AMARYL [Concomitant]

REACTIONS (2)
  - Cardio-respiratory arrest [Fatal]
  - Arteriosclerosis [Fatal]
